FAERS Safety Report 20704384 (Version 2)
Quarter: 2022Q2

REPORT INFORMATION
  Report Type: Spontaneous
  Country: GB (occurrence: GB)
  Receive Date: 20220413
  Receipt Date: 20220516
  Transmission Date: 20220720
  Serious: Yes (Other)
  Sender: FDA-Public Use
  Company Number: GB-002147023-NVSC2022GB055509

PATIENT
  Sex: Female

DRUGS (30)
  1. IMATINIB [Suspect]
     Active Substance: IMATINIB
     Indication: Chronic myeloid leukaemia
     Dosage: 300 MILLIGRAM, QD
     Route: 065
     Dates: start: 20160620, end: 20180215
  2. ASPIRIN [Suspect]
     Active Substance: ASPIRIN
     Indication: Chronic myeloid leukaemia
     Dosage: 15 MILLIGRAM, QD
     Route: 065
     Dates: start: 20210118
  3. ANAGRELIDE [Suspect]
     Active Substance: ANAGRELIDE
     Indication: Product used for unknown indication
     Dosage: 0.5 MILLIGRAM, QD
     Route: 065
     Dates: start: 20210624
  4. ANAGRELIDE [Suspect]
     Active Substance: ANAGRELIDE
     Dosage: 1.5 GRAM, QD
  5. ANAGRELIDE [Suspect]
     Active Substance: ANAGRELIDE
     Dosage: 15 GRAM, QD
  6. ANAGRELIDE [Suspect]
     Active Substance: ANAGRELIDE
     Dosage: 2 GRAM, QD
  7. DASATINIB [Suspect]
     Active Substance: DASATINIB
     Indication: Chronic myeloid leukaemia
     Dosage: 50 MILLIGRAM, QD
     Route: 065
     Dates: start: 20200715
  8. DASATINIB [Suspect]
     Active Substance: DASATINIB
     Dosage: 70 MILLIGRAM, QD
     Route: 065
     Dates: start: 20200806
  9. DASATINIB [Suspect]
     Active Substance: DASATINIB
     Dosage: 100 MILLIGRAM, QD
     Route: 065
     Dates: start: 20201016, end: 20201116
  10. ASCIMINIB [Suspect]
     Active Substance: ASCIMINIB
     Indication: Product used for unknown indication
     Dosage: 40 MILLIGRAM, BID
     Route: 065
  11. BOSUTINIB [Suspect]
     Active Substance: BOSUTINIB
     Indication: Chronic myeloid leukaemia
     Dosage: 200 MILLIGRAM, QD
     Route: 065
     Dates: start: 20180329
  12. BOSUTINIB [Suspect]
     Active Substance: BOSUTINIB
     Dosage: 300 MILLIGRAM, QD
     Route: 065
     Dates: start: 20180423
  13. BOSUTINIB [Suspect]
     Active Substance: BOSUTINIB
     Dosage: 400 MILLIGRAM, QD
     Route: 065
     Dates: start: 20200224
  14. BOSUTINIB [Suspect]
     Active Substance: BOSUTINIB
     Dosage: 500 MILLIGRAM, QD
     Route: 065
     Dates: start: 20200305, end: 20200305
  15. HYDROXYUREA [Suspect]
     Active Substance: HYDROXYUREA
     Indication: Chronic myeloid leukaemia
     Dosage: 0.5 GRAM, QD
     Route: 065
     Dates: start: 20210311
  16. HYDROXYUREA [Suspect]
     Active Substance: HYDROXYUREA
     Dosage: UNK (1G OD 5/7 AND 0.5G OD 2/7)
     Route: 065
     Dates: start: 20210322, end: 20211116
  17. HYDROXYUREA [Suspect]
     Active Substance: HYDROXYUREA
     Dosage: 15 GRAM, QD (4/7)
     Route: 065
  18. HYDROXYUREA [Suspect]
     Active Substance: HYDROXYUREA
     Dosage: 1.5 GRAM, QD
     Route: 065
  19. HYDROXYUREA [Suspect]
     Active Substance: HYDROXYUREA
     Dosage: 2 GRAM, QD (3/7)
     Route: 065
     Dates: start: 20210527
  20. PONATINIB [Suspect]
     Active Substance: PONATINIB
     Indication: Product used for unknown indication
     Dosage: 30 MILLIGRAM, QD
     Route: 065
     Dates: start: 20210204
  21. PONATINIB [Suspect]
     Active Substance: PONATINIB
     Dosage: 45 MILLIGRAM, QD
     Route: 065
     Dates: start: 20210225
  22. PONATINIB [Suspect]
     Active Substance: PONATINIB
     Dosage: 45 MILLIGRAM, QD
     Route: 065
     Dates: start: 20210322, end: 20210506
  23. PONATINIB [Suspect]
     Active Substance: PONATINIB
     Dosage: 30 MILLIGRAM, QD
     Route: 065
     Dates: start: 20210624
  24. PONATINIB [Suspect]
     Active Substance: PONATINIB
     Dosage: 15 MILLIGRAM, QD
     Route: 065
     Dates: start: 202201
  25. PONATINIB [Suspect]
     Active Substance: PONATINIB
     Dosage: 45 MILLIGRAM, QD
     Route: 065
     Dates: start: 20210311
  26. PONATINIB [Suspect]
     Active Substance: PONATINIB
     Dosage: 15 MILLIGRAM, QD
     Route: 065
     Dates: start: 20210118
  27. PONATINIB [Suspect]
     Active Substance: PONATINIB
     Dosage: UNK
     Route: 065
     Dates: start: 20210506
  28. PONATINIB [Suspect]
     Active Substance: PONATINIB
     Dosage: UNK
     Route: 065
     Dates: start: 20220103
  29. PONATINIB [Suspect]
     Active Substance: PONATINIB
     Dosage: 30 MILLIGRAM, QD
     Route: 065
     Dates: start: 20210204
  30. ASPIRIN [Suspect]
     Active Substance: ASPIRIN
     Indication: Chronic myeloid leukaemia
     Dosage: 15 MILLIGRAM, QD (15 MG, QD)
     Route: 065
     Dates: start: 20210118

REACTIONS (4)
  - Fatigue [Not Recovered/Not Resolved]
  - Drug intolerance [Not Recovered/Not Resolved]
  - Drug resistance [Not Recovered/Not Resolved]
  - Weight increased [Not Recovered/Not Resolved]
